FAERS Safety Report 12001784 (Version 1)
Quarter: 2016Q1

REPORT INFORMATION
  Report Type: Spontaneous
  Country: US (occurrence: US)
  Receive Date: 20160204
  Receipt Date: 20160204
  Transmission Date: 20160526
  Serious: No
  Sender: FDA-Public Use
  Company Number: US-PERRIGO-15US007826

PATIENT
  Age: 62 Year
  Sex: Male
  Weight: 99.77 kg

DRUGS (3)
  1. IBUPROFEN. [Suspect]
     Active Substance: IBUPROFEN
     Indication: PAIN
     Dosage: 400 MG, EVERY 6 HOURS
     Route: 048
     Dates: start: 20150202, end: 201510
  2. IBUPROFEN. [Suspect]
     Active Substance: IBUPROFEN
     Indication: PAIN
     Dosage: 400 MG, EVERY 6 HOURS
     Route: 048
     Dates: start: 20150725, end: 20150727
  3. IBUPROFEN. [Suspect]
     Active Substance: IBUPROFEN
     Dosage: 400 MG, EVERY 6 HOURS
     Route: 048
     Dates: start: 201510

REACTIONS (2)
  - Incorrect drug administration duration [Unknown]
  - Drug effect decreased [Unknown]

NARRATIVE: CASE EVENT DATE: 20150212
